FAERS Safety Report 7134461-4 (Version None)
Quarter: 2010Q4

REPORT INFORMATION
  Report Type: 
  Country: None (occurrence: None)
  Receive Date: 20101203
  Receipt Date: 20101201
  Transmission Date: 20110411
  Serious: Yes (Other)
  Sender: FDA-Public Use
  Company Number: JP-AMGEN-JPNSP2010003049

PATIENT

DRUGS (19)
  1. ENBREL [Suspect]
     Indication: RHEUMATOID ARTHRITIS
     Dosage: LYOPHYLIZED 50 MG/WEEK
     Route: 058
     Dates: start: 20060714, end: 20070706
  2. ENBREL [Suspect]
     Dosage: LYOPHYLIZED 25 MG/WEEK
     Route: 058
     Dates: start: 20070713, end: 20080627
  3. ENBREL [Suspect]
     Dosage: 25 MG, QWK
     Route: 058
     Dates: start: 20080704, end: 20100528
  4. ENBREL [Suspect]
     Dosage: 25 MG, 2 TIMES/WK
     Route: 058
     Dates: start: 20100602, end: 20100618
  5. FOSAMAX [Concomitant]
     Indication: OSTEOPOROSIS
     Route: 048
     Dates: start: 20071116
  6. PREDNISOLONE [Concomitant]
     Indication: RHEUMATOID ARTHRITIS
     Route: 048
     Dates: start: 20040107, end: 20060310
  7. PREDNISOLONE [Concomitant]
     Route: 048
     Dates: start: 20060311, end: 20070208
  8. PREDNISOLONE [Concomitant]
     Route: 048
     Dates: start: 20070209, end: 20100627
  9. NU-LOTAN [Concomitant]
     Indication: HYPERTENSION
     Route: 048
     Dates: start: 20040301
  10. DEPAS [Concomitant]
     Indication: ANXIETY DISORDER
     Route: 048
     Dates: start: 20040101
  11. TRAVELMIN [Concomitant]
     Dosage: UNSPECIFIED
     Route: 048
     Dates: start: 20070626
  12. ISCOTIN [Concomitant]
     Indication: ANTIBIOTIC PROPHYLAXIS
     Route: 048
     Dates: start: 20040616, end: 20070511
  13. SELBEX [Concomitant]
     Indication: GASTRITIS
     Route: 048
     Dates: start: 20040101
  14. ACTONEL [Concomitant]
     Indication: OSTEOPOROSIS
     Route: 048
     Dates: start: 20070130, end: 20070906
  15. PANVITAN [Concomitant]
     Indication: HYPOVITAMINOSIS
     Route: 048
     Dates: start: 20070101, end: 20100401
  16. CEPHADOL [Concomitant]
     Indication: VERTIGO
     Route: 048
     Dates: start: 20070625, end: 20071026
  17. VITAMEDIN [Concomitant]
     Indication: HYPOVITAMINOSIS
     Route: 048
     Dates: start: 20070625, end: 20071026
  18. NORVASC [Concomitant]
     Indication: HYPERTENSION
     Route: 048
     Dates: start: 20050219
  19. TAGAMET [Concomitant]
     Indication: REFLUX OESOPHAGITIS
     Route: 048
     Dates: start: 20040101

REACTIONS (4)
  - ARTHRALGIA [None]
  - CONDITION AGGRAVATED [None]
  - INTERSTITIAL LUNG DISEASE [None]
  - OEDEMA [None]
